FAERS Safety Report 16534332 (Version 3)
Quarter: 2019Q3

REPORT INFORMATION
  Report Type: Report from Study
  Country: IT (occurrence: IT)
  Receive Date: 20190705
  Receipt Date: 20190912
  Transmission Date: 20191004
  Serious: Yes (Other)
  Sender: FDA-Public Use
  Company Number: IT-BRISTOL-MYERS SQUIBB COMPANY-BMS-2019-021526

PATIENT
  Age: 68 Year
  Sex: Male

DRUGS (4)
  1. CLEXANE [Concomitant]
     Active Substance: ENOXAPARIN SODIUM
     Indication: PULMONARY EMBOLISM
     Dosage: 0.4 UNIT, QD
     Route: 058
     Dates: start: 20181107
  2. ENALAPRIL [Concomitant]
     Active Substance: ENALAPRIL
     Indication: EJECTION FRACTION DECREASED
     Dosage: HALF TABLET FOR 2/DAYS
     Route: 048
     Dates: start: 20190223
  3. UROREC [Concomitant]
     Active Substance: SILODOSIN
     Indication: URINARY TRACT DISORDER
     Dosage: 1 TAB, QD
     Route: 048
     Dates: start: 20181120
  4. NIVOLUMAB [Suspect]
     Active Substance: NIVOLUMAB
     Indication: RENAL CELL CARCINOMA
     Dosage: 240 MILLIGRAM, Q2WK
     Route: 042
     Dates: start: 20181213

REACTIONS (2)
  - Myocarditis [Recovered/Resolved]
  - Cardiac dysfunction [Recovered/Resolved]

NARRATIVE: CASE EVENT DATE: 20190222
